FAERS Safety Report 9623053 (Version 2)
Quarter: 2013Q4

REPORT INFORMATION
  Report Type: Spontaneous
  Country: US (occurrence: None)
  Receive Date: 20131010
  Receipt Date: 20131218
  Transmission Date: 20140711
  Serious: Yes (Hospitalization)
  Sender: FDA-Public Use
  Company Number: 2013SGN00575

PATIENT
  Age: 66 Year
  Sex: Male
  Weight: 111.8 kg

DRUGS (24)
  1. BRENTUXIMAB VEDOTIN (BRENTUXIMAB VEDOTIN) INJECTION [Suspect]
     Indication: DIFFUSE LARGE B-CELL LYMPHOMA
     Dosage: 1.8 MG/KG, Q21D, IV
     Route: 042
     Dates: start: 20130912, end: 20130912
  2. RITUXIMAB [Suspect]
     Indication: DIFFUSE LARGE B-CELL LYMPHOMA
     Dosage: 900 MG, Q21D, IV
     Route: 042
     Dates: start: 20130912, end: 20130912
  3. CYCLOPHOSPHAMIDE [Suspect]
     Indication: DIFFUSE LARGE B-CELL LYMPHOMA
     Dosage: 1815 MG, Q21D, IV
     Route: 042
     Dates: start: 20130912, end: 20130912
  4. DOXORUBICIN (DOXORUBICIN) INJECTION [Suspect]
     Indication: DIFFUSE LARGE B-CELL LYMPHOMA
     Dosage: 121 MG, Q21D, IV
     Route: 042
     Dates: start: 20130912, end: 20130912
  5. VINCRISTINE [Suspect]
     Indication: DIFFUSE LARGE B-CELL LYMPHOMA
     Dosage: 2 MG, Q21D, IV
     Route: 042
     Dates: start: 20130912, end: 20130912
  6. PREDNISONE [Suspect]
     Indication: DIFFUSE LARGE B-CELL LYMPHOMA
     Dosage: 100 MG, QCYCLE, IV
     Route: 042
     Dates: start: 20130912, end: 20130912
  7. ALBUTEROL [Concomitant]
  8. ALLOPURINOL [Concomitant]
  9. AMLODIPINE (AMLODIPINE) [Concomitant]
  10. VITAMIN C [Concomitant]
  11. ASPIRIN (ASPIRIN) [Concomitant]
  12. TUMS (CALCIUM CARBONATE) [Concomitant]
  13. FERROUS GLUCONATE (FERROUS GLUCONATE) [Concomitant]
  14. ADVAIR (FLUTICASONE PROPIONATE, SALMETEROL XINAFOATE) [Concomitant]
  15. HYDROMET (HOMATROPINE METHYLBROMIDE, HYDROCODONE BITARTRATE) [Concomitant]
  16. IMDUR (ISOSORBIDE MONONITRATE) [Concomitant]
  17. LISINOPRIL (LISINOPRIL) [Concomitant]
  18. ATIVAN (LORAZEPAM) [Concomitant]
  19. METFORMIN (METFORMIN) [Concomitant]
  20. METOPROLOL (METOPROLOL) [Concomitant]
  21. OMEPRAZOLE (OMEPRAZOLE) [Concomitant]
  22. ZOFRAN (ONDANSETRON HYDROCHLORIDE) [Concomitant]
  23. PREDNISONE (PREDNISONE) [Concomitant]
  24. PROCHLORPERAZINE (PROCHLORPERAZINE) [Concomitant]

REACTIONS (10)
  - Pneumonia [None]
  - Dysuria [None]
  - Dehydration [None]
  - Respiratory rate increased [None]
  - Blood glucose increased [None]
  - Atrial fibrillation [None]
  - Febrile neutropenia [None]
  - Wheezing [None]
  - Fungal infection [None]
  - Blood pressure systolic decreased [None]
